FAERS Safety Report 5041538-6 (Version None)
Quarter: 2006Q2

REPORT INFORMATION
  Report Type: 
  Country: None (occurrence: None)
  Receive Date: 20060627
  Receipt Date: 20060614
  Transmission Date: 20061013
  Serious: Yes (Other)
  Sender: FDA-Public Use
  Company Number: 001-0902-990070

PATIENT
  Age: 60 Year
  Sex: Male
  Weight: 86.1834 kg

DRUGS (6)
  1. NARDIL [Suspect]
     Indication: DEPRESSION
     Dosage: 45 MG (TID), ORAL; 60 MG DAILY, ORAL;  45 MG (15 MG, TID), ORAL
     Route: 048
     Dates: end: 19990802
  2. NARDIL [Suspect]
     Indication: DEPRESSION
     Dosage: 45 MG (TID), ORAL; 60 MG DAILY, ORAL;  45 MG (15 MG, TID), ORAL
     Route: 048
     Dates: start: 19990601
  3. NARDIL [Suspect]
     Indication: DEPRESSION
     Dosage: 45 MG (TID), ORAL; 60 MG DAILY, ORAL;  45 MG (15 MG, TID), ORAL
     Route: 048
     Dates: start: 19990802
  4. CLONAZEPAM [Suspect]
     Indication: SLEEP DISORDER
     Dates: start: 20040101
  5. VALIUM [Concomitant]
  6. AMBIEN [Concomitant]

REACTIONS (19)
  - AMNESIA [None]
  - APHONIA [None]
  - APNOEA [None]
  - BALANCE DISORDER [None]
  - CONDITION AGGRAVATED [None]
  - DEHYDRATION [None]
  - DRUG INEFFECTIVE [None]
  - DRUG INTERACTION [None]
  - DRY EYE [None]
  - DRY MOUTH [None]
  - EXTRASYSTOLES [None]
  - FALL [None]
  - INSOMNIA [None]
  - LOSS OF CONSCIOUSNESS [None]
  - MALE SEXUAL DYSFUNCTION [None]
  - OEDEMA PERIPHERAL [None]
  - SOMNOLENCE [None]
  - VISION BLURRED [None]
  - WEIGHT INCREASED [None]
